FAERS Safety Report 15921202 (Version 1)
Quarter: 2019Q1

REPORT INFORMATION
  Report Type: Report from Study
  Country: US (occurrence: US)
  Receive Date: 20190205
  Receipt Date: 20190205
  Transmission Date: 20190417
  Serious: Yes (Hospitalization, Other)
  Sender: FDA-Public Use
  Company Number: US-GILEAD-2019-0388719

PATIENT
  Age: 36 Year
  Sex: Male

DRUGS (8)
  1. FUROSEMIDE. [Concomitant]
     Active Substance: FUROSEMIDE
  2. CARVEDILOL. [Concomitant]
     Active Substance: CARVEDILOL
  3. REMODULIN [Concomitant]
     Active Substance: TREPROSTINIL
  4. TYLENOL [Concomitant]
     Active Substance: ACETAMINOPHEN
  5. WARFARIN [Concomitant]
     Active Substance: WARFARIN
  6. AMBRISENTAN [Suspect]
     Active Substance: AMBRISENTAN
     Indication: PULMONARY ARTERIAL HYPERTENSION
     Dosage: 10 MG, QD
     Route: 065
     Dates: start: 20121016
  7. DIGOX [DIGOXIN] [Concomitant]
  8. SILDENAFIL. [Concomitant]
     Active Substance: SILDENAFIL

REACTIONS (3)
  - Injection site haemorrhage [Not Recovered/Not Resolved]
  - Injection site swelling [Not Recovered/Not Resolved]
  - Injection site thrombosis [Not Recovered/Not Resolved]

NARRATIVE: CASE EVENT DATE: 20190115
